FAERS Safety Report 6426494-8 (Version None)
Quarter: 2009Q4

REPORT INFORMATION
  Report Type: 
  Country: None (occurrence: None)
  Receive Date: 20091104
  Receipt Date: 20091026
  Transmission Date: 20100525
  Serious: Yes (Other)
  Sender: FDA-Public Use
  Company Number: US-ASTRAZENECA-2009SE20797

PATIENT
  Age: 85 Year
  Sex: Male

DRUGS (4)
  1. SYMBICORT [Suspect]
     Dosage: 80/4.5 MCG
     Route: 055
  2. SYMBICORT [Suspect]
     Dosage: 160/4.5 MCG
     Route: 055
  3. ALBUTEROL [Concomitant]
  4. VARIOUS HEART MEDICATION [Concomitant]

REACTIONS (2)
  - CATARACT [None]
  - MACULAR RUPTURE [None]
